FAERS Safety Report 13447187 (Version 1)
Quarter: 2017Q2

REPORT INFORMATION
  Report Type: Spontaneous
  Country: US (occurrence: US)
  Receive Date: 20170417
  Receipt Date: 20170417
  Transmission Date: 20170830
  Serious: Yes (Life-Threatening, Hospitalization, Other)
  Sender: FDA-Public Use
  Company Number: PHHY2017US050781

PATIENT
  Age: 37 Year
  Sex: Female

DRUGS (1)
  1. LOPERAMIDE [Suspect]
     Active Substance: LOPERAMIDE
     Indication: PRODUCT USED FOR UNKNOWN INDICATION
     Dosage: AROUND 200 DF
     Route: 065

REACTIONS (3)
  - Suicide attempt [Unknown]
  - Cardiomyopathy [Unknown]
  - Electrocardiogram QT prolonged [Recovered/Resolved]
